FAERS Safety Report 6088886-9 (Version None)
Quarter: 2009Q1

REPORT INFORMATION
  Report Type: 
  Country: None (occurrence: None)
  Receive Date: 20090224
  Receipt Date: 20090219
  Transmission Date: 20090719
  Serious: Yes (Congenital Anomaly)
  Sender: FDA-Public Use
  Company Number: DE-WYE-G01343108

PATIENT
  Sex: Female

DRUGS (5)
  1. VENLAFAXINE HCL [Suspect]
     Dosage: DOSE AND FREQUENCY UNKNOWN
     Route: 064
  2. IRON [Concomitant]
  3. MAGNESIUM SULFATE [Concomitant]
     Indication: PREMATURE LABOUR
  4. FOLIC ACID [Concomitant]
     Indication: CONGENITAL ABNORMALITY PROPHYLAXIS
  5. IODIDE [Concomitant]
     Indication: CONGENITAL ABNORMALITY PROPHYLAXIS

REACTIONS (1)
  - HEART DISEASE CONGENITAL [None]
